FAERS Safety Report 7728194-0 (Version None)
Quarter: 2011Q3

REPORT INFORMATION
  Report Type: 
  Country: None (occurrence: None)
  Receive Date: 20110905
  Receipt Date: 20110822
  Transmission Date: 20111222
  Serious: Yes (Hospitalization, Other)
  Sender: FDA-Public Use
  Company Number: PHHY2011BR50568

PATIENT
  Age: 61 Year
  Sex: Female

DRUGS (3)
  1. DIOVAN HCT [Suspect]
     Indication: HYPERTENSION
  2. BAMIFIX [Concomitant]
     Indication: EMPHYSEMA
     Dosage: 300 MG, (TWICE A DAY)
  3. FORMOTEROL FUMARATE [Suspect]
     Indication: EMPHYSEMA
     Dosage: 12 MCG FORMOTEROL FUMARATE/400 MCG BUDESONIDE

REACTIONS (1)
  - PNEUMONIA [None]
